FAERS Safety Report 23937065 (Version 1)
Quarter: 2024Q2

REPORT INFORMATION
  Report Type: Spontaneous
  Country: US (occurrence: None)
  Receive Date: 20240603
  Receipt Date: 20240603
  Transmission Date: 20240716
  Serious: Yes (Other)
  Sender: FDA-Public Use
  Company Number: None

PATIENT
  Age: 58 Year
  Sex: Female
  Weight: 54 kg

DRUGS (1)
  1. CANNABIDIOL\HERBALS [Suspect]
     Active Substance: CANNABIDIOL\HERBALS
     Indication: Sleep disorder
     Dosage: OTHER QUANTITY : 3 1?FREQUENCY : AT BEDTIME
     Route: 048
     Dates: start: 20240602, end: 20240602

REACTIONS (2)
  - Hallucination [None]
  - Near death experience [None]

NARRATIVE: CASE EVENT DATE: 20240602
